FAERS Safety Report 18361529 (Version 1)
Quarter: 2020Q4

REPORT INFORMATION
  Report Type: Spontaneous
  Country: US (occurrence: US)
  Receive Date: 20201008
  Receipt Date: 20201008
  Transmission Date: 20210114
  Serious: No
  Sender: FDA-Public Use
  Company Number: US-LUPIN PHARMACEUTICALS INC.-2020-00263

PATIENT
  Sex: Male
  Weight: 81.65 kg

DRUGS (3)
  1. GABAPENTIN. [Concomitant]
     Active Substance: GABAPENTIN
     Indication: NEURALGIA
     Dosage: 300 MILLIGRAM, QD (AT NIGHT)
     Route: 065
  2. CELECOXIB CAPSULES 200 MG [Suspect]
     Active Substance: CELECOXIB
     Indication: PAIN
     Dosage: 1 DOSAGE FORM, BID
     Route: 065
     Dates: start: 2019
  3. CELECOXIB CAPSULES 200 MG [Suspect]
     Active Substance: CELECOXIB
     Dosage: 1 DOSAGE FORM, BID (RESTARTED)
     Route: 065

REACTIONS (4)
  - Dizziness [Unknown]
  - Joint swelling [Unknown]
  - Abdominal pain upper [Unknown]
  - Headache [Unknown]
